FAERS Safety Report 4421914-2 (Version None)
Quarter: 2004Q3

REPORT INFORMATION
  Report Type: 
  Country: None (occurrence: None)
  Receive Date: 20040709
  Receipt Date: 20030904
  Transmission Date: 20050211
  Serious: Yes (Other)
  Sender: FDA-Public Use
  Company Number: US-SHR-03-013057

PATIENT
  Age: 43 Year
  Sex: Female
  Weight: 88.4 kg

DRUGS (3)
  1. ULTRAVIST 300 [Suspect]
     Indication: UROGRAPHY
     Dosage: 100 ML, 1 DOSE, INTRAVENOUS
     Route: 042
     Dates: start: 20030722, end: 20030722
  2. ESTRACE ^MEAD JOHNSON^ [Concomitant]
  3. MULTIVITAMIN [Concomitant]

REACTIONS (2)
  - CONTRAST MEDIA REACTION [None]
  - DYSPNOEA [None]
